FAERS Safety Report 12916756 (Version 1)
Quarter: 2016Q4

REPORT INFORMATION
  Report Type: Spontaneous
  Country: US (occurrence: US)
  Receive Date: 20161107
  Receipt Date: 20161107
  Transmission Date: 20170207
  Serious: No
  Sender: FDA-Public Use
  Company Number: US-JAZZ-2016-US-017304

PATIENT
  Sex: Female

DRUGS (19)
  1. ASPIRIN. [Concomitant]
     Active Substance: ASPIRIN
  2. ATORVASTATIN [Concomitant]
     Active Substance: ATORVASTATIN
  3. COENZYME Q10 [Concomitant]
     Active Substance: UBIDECARENONE
  4. XYREM [Suspect]
     Active Substance: SODIUM OXYBATE
     Indication: NARCOLEPSY
     Dosage: 2.5 G, BID
     Route: 048
     Dates: start: 201608
  5. CYMBALTA [Concomitant]
     Active Substance: DULOXETINE HYDROCHLORIDE
  6. MACRODANTIN [Concomitant]
     Active Substance: NITROFURANTOIN
  7. PRESERVISION AREDS [Concomitant]
     Active Substance: MINERALS\VITAMINS
  8. FLONASE [Concomitant]
     Active Substance: FLUTICASONE PROPIONATE
  9. TIZANIDINE HCL [Concomitant]
     Active Substance: TIZANIDINE HYDROCHLORIDE
  10. TRICOR [Concomitant]
     Active Substance: FENOFIBRATE
  11. ALDACTAZIDE [Concomitant]
     Active Substance: HYDROCHLOROTHIAZIDE\SPIRONOLACTONE
  12. IMDUR [Concomitant]
     Active Substance: ISOSORBIDE MONONITRATE
  13. ANUSOL-HC [Concomitant]
  14. COREG [Concomitant]
     Active Substance: CARVEDILOL
  15. LYRICA [Concomitant]
     Active Substance: PREGABALIN
  16. ALLOPURINOL. [Concomitant]
     Active Substance: ALLOPURINOL
  17. HUMALOG [Concomitant]
     Active Substance: INSULIN LISPRO
  18. LIDODERM [Concomitant]
     Active Substance: LIDOCAINE
  19. PROTONIX [Concomitant]
     Active Substance: PANTOPRAZOLE SODIUM

REACTIONS (3)
  - Unevaluable event [Unknown]
  - Thirst [Unknown]
  - Abnormal dreams [Not Recovered/Not Resolved]

NARRATIVE: CASE EVENT DATE: 2016
